FAERS Safety Report 8920892 (Version 2)
Quarter: 2012Q4

REPORT INFORMATION
  Report Type: 
  Country: CO (occurrence: CO)
  Receive Date: 20121121
  Receipt Date: 20121128
  Transmission Date: 20130627
  Serious: Yes (Other)
  Sender: FDA-Public Use
  Company Number: CO-JNJFOC-20121105595

PATIENT
  Age: 27 None
  Sex: Female

DRUGS (4)
  1. REMICADE [Suspect]
     Indication: RHEUMATOID ARTHRITIS
     Route: 042
     Dates: start: 20121108, end: 20121120
  2. REMICADE [Suspect]
     Indication: RHEUMATOID ARTHRITIS
     Route: 042
     Dates: start: 201210
  3. LEVOTHYROXINE [Concomitant]
     Route: 048
  4. LEVOTHYROXINE [Concomitant]
     Route: 048

REACTIONS (4)
  - Respiratory distress [Recovered/Resolved]
  - Infusion related reaction [Recovered/Resolved]
  - Dizziness [Unknown]
  - Tachycardia [Recovered/Resolved]
